FAERS Safety Report 23934492 (Version 1)
Quarter: 2024Q2

REPORT INFORMATION
  Report Type: Spontaneous
  Country: US (occurrence: US)
  Receive Date: 20240603
  Receipt Date: 20240603
  Transmission Date: 20240716
  Serious: No
  Sender: FDA-Public Use
  Company Number: US-GENMAB-2024-01130

PATIENT
  Sex: Male

DRUGS (3)
  1. EPKINLY [Suspect]
     Active Substance: EPCORITAMAB-BYSP
     Indication: Diffuse large B-cell lymphoma
     Dosage: 48 MILLIGRAM PER MILLILITRE (48/0.8 EVERY 14 DAYS)
     Route: 058
     Dates: end: 20240404
  2. EPKINLY [Suspect]
     Active Substance: EPCORITAMAB-BYSP
     Indication: Non-Hodgkin^s lymphoma
  3. EPKINLY [Suspect]
     Active Substance: EPCORITAMAB-BYSP
     Indication: B-cell lymphoma

REACTIONS (1)
  - Off label use [Unknown]
